FAERS Safety Report 5501437-X (Version None)
Quarter: 2007Q4

REPORT INFORMATION
  Report Type: 
  Country: None (occurrence: None)
  Receive Date: 20071030
  Receipt Date: 20071018
  Transmission Date: 20080405
  Serious: Yes (Other)
  Sender: FDA-Public Use
  Company Number: PHHO2007BR14109

PATIENT
  Age: 64 Year
  Sex: Male
  Weight: 55 kg

DRUGS (7)
  1. DIOVAN [Suspect]
     Indication: HYPERTENSION
     Dosage: HALF TABLET/DAILY
     Route: 048
  2. DIOVAN [Suspect]
     Dosage: 80 MG, QD
     Route: 048
  3. SELOZOK [Concomitant]
  4. SIMVASTATIN [Concomitant]
  5. EUTHYROX [Concomitant]
  6. SOMALGIN [Concomitant]
  7. CARDURA [Concomitant]

REACTIONS (2)
  - BLOOD PRESSURE DECREASED [None]
  - SOMNOLENCE [None]
